FAERS Safety Report 4755055-1 (Version None)
Quarter: 2005Q3

REPORT INFORMATION
  Report Type: 
  Country: None (occurrence: None)
  Receive Date: 20050829
  Receipt Date: 20050822
  Transmission Date: 20060218
  Serious: Yes (Hospitalization, Other)
  Sender: FDA-Public Use
  Company Number: PHBS2005ES12293

PATIENT
  Age: 36 Year
  Sex: Male

DRUGS (9)
  1. CYCLOSPORINE [Suspect]
     Indication: RENAL TRANSPLANT
     Dosage: 150 MG, BID
  2. PREDNISONE TAB [Suspect]
     Indication: RENAL TRANSPLANT
     Dosage: 10 MG/DAY
  3. MYCOPHENOLATE MOFETIL [Concomitant]
     Dosage: 500 MG, BID
  4. ENALAPRIL [Concomitant]
     Indication: HYPERTENSION
     Dosage: 20 MG, BID
  5. EPOGEN [Concomitant]
     Dosage: 4000 IU, QW
  6. OMEPRAZOLE [Concomitant]
     Dosage: 20 MG/DAY
  7. CALCIUM CARBONATE [Concomitant]
     Dosage: 1 G, Q8H
  8. CALCITRIOL [Concomitant]
     Dosage: 0.25 UG/DAY
  9. SUCRALFATE [Concomitant]
     Dosage: 1 G, Q6H

REACTIONS (26)
  - ASTHENIA [None]
  - BLOOD CREATININE INCREASED [None]
  - BLOOD PHOSPHORUS INCREASED [None]
  - BLOOD PRESSURE INCREASED [None]
  - BLOOD UREA INCREASED [None]
  - BLOOD URIC ACID INCREASED [None]
  - CARDIAC FAILURE [None]
  - CARDIAC MURMUR [None]
  - CRACKLES LUNG [None]
  - CREATININE RENAL CLEARANCE DECREASED [None]
  - DRUG LEVEL INCREASED [None]
  - DUODENAL ULCER HAEMORRHAGE [None]
  - DYSPNOEA EXERTIONAL [None]
  - FATIGUE [None]
  - GASTROINTESTINAL HAEMORRHAGE [None]
  - HAEMOGLOBIN DECREASED [None]
  - HYPERTENSION [None]
  - KIDNEY TRANSPLANT REJECTION [None]
  - MIGRAINE [None]
  - NAUSEA [None]
  - OEDEMA PERIPHERAL [None]
  - PROTEIN URINE PRESENT [None]
  - PRURITUS [None]
  - PULMONARY OEDEMA [None]
  - RENAL FAILURE ACUTE [None]
  - WEIGHT DECREASED [None]
